FAERS Safety Report 13339412 (Version 1)
Quarter: 2017Q1

REPORT INFORMATION
  Report Type: Report from Study
  Country: US (occurrence: HU)
  Receive Date: 20170315
  Receipt Date: 20170315
  Transmission Date: 20170428
  Serious: Yes (Death, Other)
  Sender: FDA-Public Use
  Company Number: US-SUNOVION-2017SUN001154

PATIENT

DRUGS (9)
  1. GLYCOPYRROLATE. [Suspect]
     Active Substance: GLYCOPYRROLATE
     Indication: CHRONIC OBSTRUCTIVE PULMONARY DISEASE
     Dosage: 44 ?G, QD
     Route: 055
     Dates: start: 20161027, end: 20170202
  2. DIGOXIN. [Concomitant]
     Active Substance: DIGOXIN
     Dosage: UNK
  3. COVEREX [Concomitant]
     Dosage: UNK
  4. CONCOR [Concomitant]
     Active Substance: BISOPROLOL FUMARATE
     Dosage: UNK
  5. TALLITON [Concomitant]
     Dosage: 6.25 MG, UNK
  6. DIGOXIN. [Concomitant]
     Active Substance: DIGOXIN
     Dosage: 0.5 DF (0.5 TABLET), UNK
  7. CONCOR [Concomitant]
     Active Substance: BISOPROLOL FUMARATE
     Dosage: UNK (10-0-5 MG)
  8. TALLITON [Concomitant]
     Dosage: 2 DF (6.25 MG X 2), UNK
  9. COVEREX [Concomitant]
     Dosage: 2 DF (2 TABLETS), UNK

REACTIONS (41)
  - Haemoglobin decreased [Unknown]
  - Respiratory failure [Unknown]
  - Fall [Unknown]
  - Oedema peripheral [Unknown]
  - Arteriosclerosis [Unknown]
  - Mean cell haemoglobin decreased [Unknown]
  - Dyspnoea [Unknown]
  - Atrophy [Unknown]
  - Red cell distribution width increased [Unknown]
  - Blood glucose decreased [Unknown]
  - Renal impairment [Unknown]
  - Pulmonary oedema [Unknown]
  - Breath sounds abnormal [Unknown]
  - Platelet count decreased [Unknown]
  - Chronic kidney disease [Unknown]
  - Cough [Unknown]
  - Rales [Unknown]
  - Atrial flutter [Unknown]
  - Pain in extremity [Unknown]
  - Atrial fibrillation [Unknown]
  - Feeding disorder [Unknown]
  - Blood iron decreased [Unknown]
  - Generalised oedema [Unknown]
  - Cardiac failure [Fatal]
  - Deep vein thrombosis [Unknown]
  - Pneumonia [Not Recovered/Not Resolved]
  - Inflammatory marker increased [Unknown]
  - Alanine aminotransferase increased [Unknown]
  - Arthralgia [Unknown]
  - Myocardial ischaemia [Unknown]
  - Dyspnoea at rest [Unknown]
  - Blood potassium decreased [Unknown]
  - Heart rate increased [Unknown]
  - General physical health deterioration [Unknown]
  - Hepatomegaly [Unknown]
  - Aspartate aminotransferase increased [Unknown]
  - Gamma-glutamyltransferase increased [Unknown]
  - Lymphocyte count decreased [Unknown]
  - Mean cell haemoglobin concentration decreased [Unknown]
  - Neutrophil count increased [Unknown]
  - Chronic obstructive pulmonary disease [Unknown]

NARRATIVE: CASE EVENT DATE: 20170109
